FAERS Safety Report 4392418-0 (Version None)
Quarter: 2004Q3

REPORT INFORMATION
  Report Type: 
  Country: None (occurrence: None)
  Receive Date: 20040702
  Receipt Date: 20040622
  Transmission Date: 20050211
  Serious: Yes (Death, Hospitalization)
  Sender: FDA-Public Use
  Company Number: US-JNJFOC-20040302683

PATIENT
  Age: 45 Year
  Sex: Female
  Weight: 106.5953 kg

DRUGS (9)
  1. DURAGESIC [Suspect]
     Indication: PAIN
     Dosage: TRANSDERMAL
     Route: 062
     Dates: start: 20010101, end: 20010301
  2. MS CONTIN [Suspect]
     Indication: NEUROPATHIC PAIN
     Dosage: 30 MG, 2 IN 1 DAY, ORAL
     Route: 048
  3. KLONOPIN [Concomitant]
  4. DESYREL (TRAZADONE HYDROCHLORIDE) [Concomitant]
  5. PREVACID [Concomitant]
  6. NEURONTIN [Concomitant]
  7. DILANTIN [Concomitant]
  8. PROZAC [Concomitant]
  9. GLUCOPHAGE [Concomitant]

REACTIONS (1)
  - CARDIAC FAILURE CONGESTIVE [None]
